FAERS Safety Report 9471454 (Version 2)
Quarter: 2013Q3

REPORT INFORMATION
  Report Type: Report from Study
  Country: ZA (occurrence: ZA)
  Receive Date: 20130822
  Receipt Date: 20130822
  Transmission Date: 20140515
  Serious: Yes (Death, Life-Threatening, Hospitalization)
  Sender: FDA-Public Use
  Company Number: PHHO2008ZA05093

PATIENT
  Age: 62 Year
  Sex: Male
  Weight: 92 kg

DRUGS (27)
  1. ALISKIREN [Suspect]
     Indication: CARDIOVASCULAR DISORDER
     Route: 048
     Dates: start: 20080107, end: 20080205
  2. SOLU-CORTEF [Suspect]
     Dosage: 100 MG, Q6H
     Route: 042
     Dates: start: 20080408, end: 20080413
  3. ZILDEM [Suspect]
     Dosage: 90 MG, BID
     Route: 048
     Dates: start: 20080408, end: 20080413
  4. NOVOMIX 30 [Concomitant]
  5. ACTOS [Concomitant]
  6. GLUCOPHAGE [Concomitant]
  7. LIPITOR [Concomitant]
  8. PHARMAPRESS [Concomitant]
  9. ADALAT XL [Concomitant]
  10. CELEBREX [Concomitant]
  11. NOVORAPID [Concomitant]
  12. DISPRIN [Concomitant]
  13. TOFRANIL [Concomitant]
  14. ASTHAVENT [Concomitant]
  15. SERETIDE [Concomitant]
  16. EUPHYLLIN RETARD [Concomitant]
  17. PARIET [Concomitant]
  18. SPIRACTIN [Concomitant]
  19. LASIX [Concomitant]
  20. PURICOS [Concomitant]
  21. ZIAK [Concomitant]
  22. LYRICA [Concomitant]
  23. LANTUS [Concomitant]
  24. SINGULAIR [Concomitant]
  25. ALZAM [Concomitant]
  26. ECOTRIN [Concomitant]
  27. NITROLINGUAL-SPRAY N [Concomitant]

REACTIONS (28)
  - Hypertension [Unknown]
  - Dyspnoea [Unknown]
  - Left ventricular failure [Fatal]
  - Pulmonary oedema [Unknown]
  - Respiratory distress [Unknown]
  - Acute myocardial infarction [Recovered/Resolved]
  - Electrocardiogram T wave inversion [Recovered/Resolved]
  - Electrocardiogram Q waves [Recovered/Resolved]
  - Acute pulmonary oedema [Recovered/Resolved]
  - Myocardial ischaemia [Recovered/Resolved]
  - Cardiac failure [Recovered/Resolved]
  - Asthma [Recovered/Resolved]
  - Non-cardiac chest pain [Recovered/Resolved]
  - Angina pectoris [Recovering/Resolving]
  - Chest pain [Recovering/Resolving]
  - Dyspnoea paroxysmal nocturnal [Recovered/Resolved]
  - Orthopnoea [Recovered/Resolved]
  - Diastolic dysfunction [Recovering/Resolving]
  - Mitral valve incompetence [Recovering/Resolving]
  - Aortic stenosis [Recovering/Resolving]
  - Gastrooesophageal reflux disease [Recovering/Resolving]
  - Coronary artery disease [Recovering/Resolving]
  - Cardiac failure congestive [Recovering/Resolving]
  - Disease progression [Recovering/Resolving]
  - Bradycardia [Recovering/Resolving]
  - Hypotension [Not Recovered/Not Resolved]
  - Urinary retention postoperative [Recovered/Resolved]
  - Renal impairment [Not Recovered/Not Resolved]
